FAERS Safety Report 5494985-2 (Version None)
Quarter: 2007Q4

REPORT INFORMATION
  Report Type: 
  Country: None (occurrence: None)
  Receive Date: 20071024
  Receipt Date: 20071019
  Transmission Date: 20080405
  Serious: Yes (Life-Threatening, Hospitalization)
  Sender: FDA-Public Use
  Company Number: ES-AVENTIS-200719562GDDC

PATIENT
  Age: 43 Year
  Sex: Male

DRUGS (6)
  1. TARGOCID [Suspect]
     Route: 042
     Dates: start: 20070702, end: 20070717
  2. CLEXANE [Suspect]
     Route: 058
     Dates: start: 20070701
  3. CIPROFLOXACIN [Suspect]
     Route: 042
     Dates: start: 20070709, end: 20070713
  4. MERONEM                            /01250501/ [Suspect]
     Route: 042
     Dates: start: 20070712, end: 20070717
  5. PERFALGAN [Suspect]
     Route: 042
     Dates: start: 20070701
  6. NOLOTIL                            /00473101/ [Suspect]
     Route: 042
     Dates: start: 20070704, end: 20070717

REACTIONS (2)
  - DRUG INTERACTION [None]
  - LEUKOPENIA [None]
